FAERS Safety Report 21772629 (Version 1)
Quarter: 2022Q4

REPORT INFORMATION
  Report Type: Spontaneous
  Country: US (occurrence: US)
  Receive Date: 20221223
  Receipt Date: 20221223
  Transmission Date: 20230113
  Serious: Yes (Other)
  Sender: FDA-Public Use
  Company Number: US-BAYER-2022A171775

PATIENT
  Sex: Female

DRUGS (9)
  1. BETASERON [Suspect]
     Active Substance: INTERFERON BETA-1B
  2. VITAMINS [Suspect]
     Active Substance: VITAMINS
  3. OCREVUS [Concomitant]
     Active Substance: OCRELIZUMAB
  4. ISOSORBIDE [Concomitant]
     Active Substance: ISOSORBIDE
  5. HYDRALAZINE [Concomitant]
     Active Substance: HYDRALAZINE HYDROCHLORIDE
  6. ELIQUIS [Concomitant]
     Active Substance: APIXABAN
  7. METOPROLOL [Concomitant]
     Active Substance: METOPROLOL
  8. BACLOFEN [Concomitant]
     Active Substance: BACLOFEN
  9. VITAMIN D3 [Concomitant]
     Active Substance: CHOLECALCIFEROL

REACTIONS (1)
  - Renal injury [None]
